FAERS Safety Report 17232984 (Version 1)
Quarter: 2020Q1

REPORT INFORMATION
  Report Type: Spontaneous
  Country: BR (occurrence: BR)
  Receive Date: 20200103
  Receipt Date: 20200103
  Transmission Date: 20200409
  Serious: Yes (Other)
  Sender: FDA-Public Use
  Company Number: BR-NOVOPROD-705013

PATIENT
  Sex: Male
  Weight: 107 kg

DRUGS (6)
  1. ATENOLOL. [Concomitant]
     Active Substance: ATENOLOL
     Indication: PRODUCT USED FOR UNKNOWN INDICATION
     Dosage: UNK
     Route: 065
  2. SAXENDA [Suspect]
     Active Substance: LIRAGLUTIDE
     Indication: GLUCOSE TOLERANCE IMPAIRED
     Dosage: 1.2 MG
     Route: 065
     Dates: start: 201910
  3. LOSARTAN. [Concomitant]
     Active Substance: LOSARTAN
     Indication: PRODUCT USED FOR UNKNOWN INDICATION
     Dosage: UNK
     Route: 065
  4. INDAPAMIDE. [Concomitant]
     Active Substance: INDAPAMIDE
     Indication: PRODUCT USED FOR UNKNOWN INDICATION
     Dosage: UNK
     Route: 065
  5. SAXENDA [Suspect]
     Active Substance: LIRAGLUTIDE
     Indication: HYPERTENSION
  6. SAXENDA [Suspect]
     Active Substance: LIRAGLUTIDE
     Indication: OVERWEIGHT

REACTIONS (7)
  - Dry throat [Not Recovered/Not Resolved]
  - Faeces hard [Not Recovered/Not Resolved]
  - Haemorrhoids [Not Recovered/Not Resolved]
  - Dyspnoea [Not Recovered/Not Resolved]
  - Palatal oedema [Not Recovered/Not Resolved]
  - Product use in unapproved indication [Unknown]
  - Dry mouth [Not Recovered/Not Resolved]

NARRATIVE: CASE EVENT DATE: 20191103
